FAERS Safety Report 8235737-X (Version None)
Quarter: 2012Q1

REPORT INFORMATION
  Report Type: 
  Country: None (occurrence: None)
  Receive Date: 20120326
  Receipt Date: 20120323
  Transmission Date: 20120608
  Serious: Yes (Life-Threatening, Hospitalization, Disabling)
  Sender: FDA-Public Use
  Company Number: PHFR2012GB000718

PATIENT
  Sex: Male

DRUGS (2)
  1. CLOZARIL [Suspect]
     Route: 048
     Dates: start: 20120117
  2. CLOZARIL [Suspect]
     Indication: SCHIZOPHRENIA
     Dosage: 300 MG, DAILY
     Route: 048
     Dates: start: 20090406

REACTIONS (3)
  - CEREBROVASCULAR ACCIDENT [None]
  - ROAD TRAFFIC ACCIDENT [None]
  - HEMIPARESIS [None]
